FAERS Safety Report 9218124 (Version 2)
Quarter: 2013Q3

REPORT INFORMATION
  Report Type: Spontaneous
  Country: US (occurrence: US)
  Receive Date: 20130408
  Receipt Date: 20130722
  Transmission Date: 20140515
  Serious: Yes (Death, Other)
  Sender: FDA-Public Use
  Company Number: US-TARO-2013P1004310

PATIENT
  Age: 75 Year
  Sex: Male
  Weight: 58.06 kg

DRUGS (11)
  1. WARFARIN SODIUM TABLETS USP 5MG [Suspect]
     Indication: DEEP VEIN THROMBOSIS
     Route: 048
     Dates: start: 20130131
  2. WARFARIN SODIUM TABLETS USP 5MG [Suspect]
     Indication: DEEP VEIN THROMBOSIS
     Route: 048
     Dates: end: 201302
  3. ENOXAPARIN INJ 60MG/0.6ML [Concomitant]
  4. ACETAMINOPHEN [Concomitant]
     Route: 048
  5. CALCIUM CARBONATE/VITAMIN D3 (CALCIUM 500 +D) TABLET [Concomitant]
     Route: 048
  6. FENOFIBRIC ACID DR [Concomitant]
     Route: 048
  7. SIMVASTATIN [Concomitant]
     Route: 048
  8. OMEPRAZOLE (PRILOSEC) 20 MG CAPSULE [Concomitant]
     Route: 048
  9. HYDROCODONE/IBUPROFEN (VICOPROFEN) 7.5 MG/200 MG [Concomitant]
     Route: 048
  10. TAMSULOSIN HCL (FLOMAX) [Concomitant]
     Route: 048
  11. LEVOTHYROXINE (SYNTHROID) [Concomitant]
     Route: 048

REACTIONS (10)
  - International normalised ratio increased [Unknown]
  - Haemorrhage [Unknown]
  - Product quality issue [Unknown]
  - Abdominal pain [Fatal]
  - Cardio-respiratory arrest [Fatal]
  - Abdominal wall haematoma [Fatal]
  - Pancreatitis [Unknown]
  - Arthritis [Unknown]
  - Pulmonary embolism [Unknown]
  - Nodule [Unknown]
